FAERS Safety Report 20139926 (Version 1)
Quarter: 2021Q4

REPORT INFORMATION
  Report Type: Spontaneous
  Country: US (occurrence: None)
  Receive Date: 20211201
  Receipt Date: 20211201
  Transmission Date: 20220303
  Serious: No
  Sender: FDA-Public Use
  Company Number: None

PATIENT
  Age: 52 Year
  Sex: Female

DRUGS (10)
  1. BUPROPION [Suspect]
     Active Substance: BUPROPION
     Indication: Smoking cessation therapy
     Dosage: OTHER QUANTITY : 1 TABLET(S);?FREQUENCY : TWICE A DAY;?
     Route: 048
     Dates: start: 20211120, end: 20211130
  2. BUPROPION [Suspect]
     Active Substance: BUPROPION
     Indication: Depression
  3. HYDROCHLOROTHIAZIDE [Concomitant]
     Active Substance: HYDROCHLOROTHIAZIDE
  4. FENOFIBRATE [Concomitant]
     Active Substance: FENOFIBRATE
  5. ZOCOR [Concomitant]
     Active Substance: SIMVASTATIN
  6. CARAFATE [Concomitant]
     Active Substance: SUCRALFATE
  7. PROTONIX [Concomitant]
     Active Substance: PANTOPRAZOLE SODIUM
  8. VITAMIN D NOS [Concomitant]
     Active Substance: VITAMIN D NOS
  9. Levothyroxide [Concomitant]
  10. MELOXICAM [Concomitant]
     Active Substance: MELOXICAM

REACTIONS (3)
  - Urticaria [None]
  - Lip swelling [None]
  - Swollen tongue [None]

NARRATIVE: CASE EVENT DATE: 20211128
